FAERS Safety Report 13803271 (Version 2)
Quarter: 2017Q3

REPORT INFORMATION
  Report Type: Spontaneous
  Country: BR (occurrence: BR)
  Receive Date: 20170728
  Receipt Date: 20170821
  Transmission Date: 20171127
  Serious: Yes (Other)
  Sender: FDA-Public Use
  Company Number: BR-BRISTOL-MYERS SQUIBB COMPANY-BMS-2017-067104

PATIENT
  Sex: Male

DRUGS (2)
  1. ATAZANAVIR SULFATE [Suspect]
     Active Substance: ATAZANAVIR SULFATE
     Indication: ANTIRETROVIRAL THERAPY
     Dosage: 300 MG, UNK
     Route: 065
  2. LAMIVUDINE;TENOFOVIR [Suspect]
     Active Substance: LAMIVUDINE\TENOFOVIR
     Indication: ANTIRETROVIRAL THERAPY
     Route: 065

REACTIONS (4)
  - Vertigo [Unknown]
  - Malaise [Unknown]
  - Dizziness [Unknown]
  - Suicidal ideation [Unknown]
